FAERS Safety Report 22261005 (Version 4)
Quarter: 2023Q2

REPORT INFORMATION
  Report Type: Spontaneous
  Country: US (occurrence: US)
  Receive Date: 20230427
  Receipt Date: 20230605
  Transmission Date: 20230722
  Serious: No
  Sender: FDA-Public Use
  Company Number: US-PFIZER INC-PV202300075203

PATIENT
  Age: 69 Year
  Sex: Female
  Weight: 69.388 kg

DRUGS (1)
  1. ESTRING [Suspect]
     Active Substance: ESTRADIOL
     Indication: Vulvovaginal dryness
     Dosage: 1 DF, EVERY 3 MONTHS (INSERT 1 RING VAGINALLY EVERY 90 DAYS)
     Dates: start: 20230206, end: 2023

REACTIONS (5)
  - Dizziness [Recovered/Resolved]
  - Nausea [Recovered/Resolved]
  - Vulvovaginal discomfort [Recovered/Resolved]
  - Pubic pain [Unknown]
  - Fatigue [Recovered/Resolved]

NARRATIVE: CASE EVENT DATE: 20230101
